FAERS Safety Report 22194538 (Version 1)
Quarter: 2023Q2

REPORT INFORMATION
  Report Type: Spontaneous
  Country: AT (occurrence: TR)
  Receive Date: 20230411
  Receipt Date: 20230411
  Transmission Date: 20230722
  Serious: Yes (Other)
  Sender: FDA-Public Use
  Company Number: AT-SUN PHARMACEUTICAL INDUSTRIES LTD-2023RR-383936

PATIENT
  Age: 14 Year
  Sex: Male

DRUGS (1)
  1. IMATINIB [Suspect]
     Active Substance: IMATINIB
     Indication: Chronic myeloid leukaemia
     Dosage: 300 MILLIGRAM/SQ. METER, DAILY
     Route: 065

REACTIONS (3)
  - Pain in extremity [Unknown]
  - Drug ineffective [Unknown]
  - Treatment noncompliance [Unknown]
